FAERS Safety Report 15218613 (Version 2)
Quarter: 2018Q3

REPORT INFORMATION
  Report Type: Report from Study
  Country: None (occurrence: US)
  Receive Date: 20180731
  Receipt Date: 20180830
  Transmission Date: 20181010
  Serious: Yes (Other)
  Sender: FDA-Public Use
  Company Number: US-ABBVIE-18K-163-2393095-00

PATIENT
  Age: 52 Year
  Sex: Male

DRUGS (1)
  1. HUMIRA [Suspect]
     Active Substance: ADALIMUMAB
     Indication: PSORIATIC ARTHROPATHY
     Route: 058

REACTIONS (14)
  - Cardiac valve disease [Unknown]
  - Dysphonia [Recovering/Resolving]
  - Respiratory disorder [Recovering/Resolving]
  - Spinal column stenosis [Unknown]
  - Procedural pain [Unknown]
  - Dizziness [Unknown]
  - Neuralgia [Unknown]
  - Device related infection [Unknown]
  - Pain [Unknown]
  - Tooth extraction [Unknown]
  - Dehydration [Unknown]
  - Drug ineffective [Unknown]
  - Malaise [Unknown]
  - Cardiac murmur [Unknown]

NARRATIVE: CASE EVENT DATE: 2005
